FAERS Safety Report 15111481 (Version 3)
Quarter: 2018Q4

REPORT INFORMATION
  Report Type: Spontaneous
  Country: US (occurrence: US)
  Receive Date: 20180705
  Receipt Date: 20181130
  Transmission Date: 20190204
  Serious: No
  Sender: FDA-Public Use
  Company Number: US-PFIZER INC-2018243748

PATIENT
  Age: 61 Year
  Sex: Female

DRUGS (1)
  1. LYRICA [Suspect]
     Active Substance: PREGABALIN
     Indication: LUMBAR RADICULOPATHY
     Dosage: 75 MG, 3X/DAY, (1 CAPSULE 3 TIMES A DAY)
     Route: 048
     Dates: start: 20181008

REACTIONS (3)
  - Withdrawal syndrome [Unknown]
  - Headache [Unknown]
  - Product use issue [Unknown]
